FAERS Safety Report 10277534 (Version 2)
Quarter: 2014Q3

REPORT INFORMATION
  Report Type: Spontaneous
  Country: US (occurrence: US)
  Receive Date: 20140703
  Receipt Date: 20140703
  Transmission Date: 20150326
  Serious: Yes (Hospitalization)
  Sender: FDA-Public Use
  Company Number: US-GLAXOSMITHKLINE-A0892666A

PATIENT
  Sex: Male
  Weight: 128.2 kg

DRUGS (7)
  1. LIPITOR [Concomitant]
     Active Substance: ATORVASTATIN CALCIUM
  2. PRINIVIL [Concomitant]
     Active Substance: LISINOPRIL
  3. GLUCOTROL XL [Concomitant]
     Active Substance: GLIPIZIDE
  4. VIOXX [Concomitant]
     Active Substance: ROFECOXIB
  5. ATENOLOL. [Concomitant]
     Active Substance: ATENOLOL
  6. AVANDIA [Suspect]
     Active Substance: ROSIGLITAZONE MALEATE
     Indication: DIABETES MELLITUS
     Dosage: 4MG TWICE PER DAY
     Route: 048
     Dates: start: 20000411, end: 200502
  7. ASPIRIN. [Concomitant]
     Active Substance: ASPIRIN

REACTIONS (4)
  - Gait disturbance [Unknown]
  - Cardiac failure congestive [Not Recovered/Not Resolved]
  - Arteriosclerosis coronary artery [Unknown]
  - Myocardial infarction [Unknown]
